FAERS Safety Report 4278471-3 (Version None)
Quarter: 2004Q1

REPORT INFORMATION
  Report Type: 
  Country: None (occurrence: None)
  Receive Date: 20040123
  Receipt Date: 20031009
  Transmission Date: 20041129
  Serious: Yes (Hospitalization, Other)
  Sender: FDA-Public Use
  Company Number: WAES 0310USA01305

PATIENT
  Age: 43 Year
  Sex: Female
  Weight: 99 kg

DRUGS (7)
  1. CLOTRIMAZOLE [Concomitant]
  2. DIURETIC (UNSPECIFIED) [Concomitant]
     Dates: start: 20010101
  3. BRONCHOLATE [Concomitant]
  4. TRI-NORINYL 21-DAY [Concomitant]
  5. VIOXX [Suspect]
     Indication: BACK PAIN
     Route: 048
     Dates: start: 20010101, end: 20011002
  6. VIOXX [Suspect]
     Indication: ARTHRITIS
     Route: 048
     Dates: start: 20010101, end: 20011002
  7. TRIAMTERENE [Concomitant]

REACTIONS (12)
  - ANAEMIA [None]
  - BRAIN MASS [None]
  - CEREBRAL ARTERY THROMBOSIS [None]
  - CEREBRAL INFARCTION [None]
  - CEREBROVASCULAR ACCIDENT [None]
  - CONVULSION [None]
  - GASTRIC ULCER [None]
  - HYPERTENSION [None]
  - HYPERTENSIVE HEART DISEASE [None]
  - INTRACRANIAL ANEURYSM [None]
  - OSTEOARTHRITIS [None]
  - PAIN [None]
